FAERS Safety Report 6848951-2 (Version None)
Quarter: 2010Q3

REPORT INFORMATION
  Report Type: 
  Country: None (occurrence: None)
  Receive Date: 20100716
  Receipt Date: 20070925
  Transmission Date: 20110219
  Serious: No
  Sender: FDA-Public Use
  Company Number: US-PFIZER INC-2007081979

PATIENT
  Sex: Male
  Weight: 77.727 kg

DRUGS (1)
  1. CHANTIX [Suspect]
     Indication: SMOKING CESSATION THERAPY
     Dates: start: 20070917, end: 20070924

REACTIONS (4)
  - DIZZINESS [None]
  - FATIGUE [None]
  - PAIN [None]
  - SOMNOLENCE [None]
